FAERS Safety Report 7324214-6 (Version None)
Quarter: 2011Q1

REPORT INFORMATION
  Report Type: 
  Country: None (occurrence: None)
  Receive Date: 20110202
  Receipt Date: 20101122
  Transmission Date: 20110831
  Serious: No
  Sender: FDA-Public Use
  Company Number: 2010-15235

PATIENT
  Age: 70 Year
  Sex: Male

DRUGS (1)
  1. RAPAFLO [Suspect]
     Indication: BLADDER DISORDER
     Dosage: 1 CAPSULE, SINGLE, ORAL
     Route: 048
     Dates: start: 20101120, end: 20101120

REACTIONS (2)
  - EYE SWELLING [None]
  - SWELLING FACE [None]
